FAERS Safety Report 6827433-8 (Version None)
Quarter: 2010Q3

REPORT INFORMATION
  Report Type: 
  Country: None (occurrence: None)
  Receive Date: 20100709
  Receipt Date: 20070112
  Transmission Date: 20110219
  Serious: No
  Sender: FDA-Public Use
  Company Number: US-PFIZER INC-2007004849

PATIENT
  Sex: Male

DRUGS (11)
  1. CHANTIX [Suspect]
     Indication: SMOKING CESSATION THERAPY
     Route: 048
     Dates: start: 20061201, end: 20070101
  2. CALCIUM CARBONATE [Concomitant]
  3. SIMVASTATIN [Concomitant]
  4. LASIX [Concomitant]
  5. NEURONTIN [Concomitant]
  6. GRISEOFULVIN [Concomitant]
  7. POTASSIUM [Concomitant]
  8. METFORMIN HCL [Concomitant]
  9. FLOVENT [Concomitant]
  10. SPIRIVA [Concomitant]
  11. ACETYLSALICYLIC ACID [Concomitant]

REACTIONS (1)
  - DECREASED APPETITE [None]
